FAERS Safety Report 14028253 (Version 1)
Quarter: 2017Q3

REPORT INFORMATION
  Report Type: Spontaneous
  Country: US (occurrence: US)
  Receive Date: 20170930
  Receipt Date: 20170930
  Transmission Date: 20171128
  Serious: Yes (Hospitalization, Other)
  Sender: FDA-Public Use
  Company Number: US-VISTAPHARM, INC.-VER201709-000693

PATIENT
  Age: 56 Year
  Sex: Female

DRUGS (6)
  1. ALBUTEROL. [Suspect]
     Active Substance: ALBUTEROL
     Indication: ASTHMA
  2. IPRATROPIUM BROMIDE. [Suspect]
     Active Substance: IPRATROPIUM BROMIDE
     Indication: ASTHMA
  3. METHYLPREDNISOLONE SODIUM SUCCINATE. [Concomitant]
     Active Substance: METHYLPREDNISOLONE SODIUM SUCCINATE
     Indication: PRODUCT USED FOR UNKNOWN INDICATION
     Route: 042
  4. ALBUTEROL. [Suspect]
     Active Substance: ALBUTEROL
  5. METFORMIN [Concomitant]
     Active Substance: METFORMIN HYDROCHLORIDE
  6. ALBUTEROL. [Suspect]
     Active Substance: ALBUTEROL
     Dosage: GIVEN 2 ADDITIONAL ROUNDS OF 7.5 MG (5 MG/ML)

REACTIONS (1)
  - Lactic acidosis [Recovering/Resolving]
